FAERS Safety Report 10008578 (Version 1)
Quarter: 2014Q1

REPORT INFORMATION
  Report Type: Spontaneous
  Country: US (occurrence: US)
  Receive Date: 20140312
  Receipt Date: 20140312
  Transmission Date: 20141002
  Serious: No
  Sender: FDA-Public Use
  Company Number: US-INCYTE CORPORATION-2012IN000046

PATIENT
  Age: 74 Year
  Sex: Male

DRUGS (4)
  1. JAKAFI [Suspect]
     Indication: MYELOFIBROSIS
     Dosage: 5 MG, BID
     Route: 048
     Dates: start: 201112, end: 201201
  2. ATENOLOL [Concomitant]
     Dosage: 12.5 MG, BID
     Route: 048
  3. PROTONIX [Concomitant]
     Dosage: 40 MG, QD
     Route: 048
  4. INTEGRA/IRON SUPPLEMENT [Concomitant]
     Dosage: 1 TABLET, QD
     Route: 048

REACTIONS (3)
  - Upper respiratory tract infection [Not Recovered/Not Resolved]
  - Platelet count decreased [Unknown]
  - White blood cell count decreased [Unknown]
